FAERS Safety Report 7999073-9 (Version None)
Quarter: 2011Q4

REPORT INFORMATION
  Report Type: 
  Country: None (occurrence: None)
  Receive Date: 20111221
  Receipt Date: 20111205
  Transmission Date: 20120403
  Serious: Yes (Hospitalization, Other)
  Sender: FDA-Public Use
  Company Number: US-ROCHE-GNE247956

PATIENT
  Sex: Female
  Weight: 84.09 kg

DRUGS (50)
  1. CYANOCOBALAMIN-TANNIN COMPLEX [Concomitant]
     Route: 030
     Dates: start: 20060101
  2. METHADONE HCL [Concomitant]
     Dates: start: 20100701
  3. METHOTREXATE [Concomitant]
     Dates: start: 20061001
  4. CONJUGATED ESTROGENS [Concomitant]
     Indication: IMMUNISATION
     Dates: end: 20090501
  5. ERGOCALCIFEROL [Concomitant]
     Dosage: SL ONCE DAILY,START DATE:SEP (YEAR UNSPECIFIED), END DATE:JAN (YEAR UNSPECIFIED)
  6. CYANOCOBALAMIN-TANNIN COMPLEX [Concomitant]
     Indication: PRODUCT USED FOR UNKNOWN INDICATION
     Dates: start: 20060101
  7. ACETYLSALICYLIC ACID SRT [Concomitant]
     Dosage: ROUTE:PER ORAL
  8. CLONAZEPAM [Concomitant]
     Dosage: DOSE:0.5 MG AT BEDTIME
     Dates: start: 20061201
  9. PREDNISONE TAB [Concomitant]
     Dosage: ROUTE:PER ORAL,DATE/JUN/ (YEAR UNSPECIFIED)
  10. TRIAMCINOLONE ACETONIDE [Concomitant]
     Dosage: MDI 02 PUFFS
     Dates: start: 20070201, end: 20100101
  11. HYDROXYCHLOROQUINE SULFATE [Concomitant]
     Dates: start: 20100101
  12. FOLIC ACID [Concomitant]
     Dates: start: 20061001
  13. MULTI-VITAMINS [Concomitant]
  14. ETANERCEPT [Concomitant]
     Route: 058
     Dates: start: 20061001, end: 20070101
  15. MODAFINIL [Concomitant]
     Dates: start: 20060701, end: 20060801
  16. VENLAFAXINE HCL [Concomitant]
     Dates: start: 20070101, end: 20080801
  17. PREGABALIN [Concomitant]
     Dosage: AT BED TIME,ROUTE:PER ORAL
     Dates: start: 20081001
  18. CONJUGATED ESTROGENS [Concomitant]
     Dosage: DOSE 0.625 GTT ON MTF
     Dates: start: 20060401, end: 20090501
  19. METOPROLOL SUCCINATE [Concomitant]
     Route: 048
  20. FEXOFENADINE HYDROCHLORIDE [Concomitant]
  21. MEFENAMIC ACID [Concomitant]
     Indication: HOT FLUSH
     Dosage: HERBAL SUPPLEMENT
  22. BUPROPION HYDROCHLORIDE [Concomitant]
     Dates: start: 20061001, end: 20070101
  23. BUPROPION HYDROCHLORIDE [Concomitant]
     Dates: start: 20080801, end: 20090101
  24. DULOXETINE HYDROCHLORIDE [Concomitant]
     Dates: start: 20090101, end: 20100701
  25. MENINGOCOCCAL POLYSACCHARIDE VACCINE [Concomitant]
     Dates: start: 20110501
  26. FLU-IMUNE [Concomitant]
     Indication: IMMUNISATION
     Dates: start: 20081001
  27. ADALIMUMAB [Suspect]
     Indication: RHEUMATOID ARTHRITIS
     Dosage: 40 MG/0.8 ML, DRUG:HUMIRA PEN
     Route: 058
     Dates: start: 20070101, end: 20071101
  28. LANSOPRAZOLE [Concomitant]
     Dates: end: 20080801
  29. LACTOBACILLUS ACIDOPHILUS [Concomitant]
     Dosage: END DATE:/JAN/ (YEAR UNSPECIFIED)
     Dates: start: 20040801
  30. MONTELUKAST SODIUM [Concomitant]
     Dates: start: 20040801, end: 20050101
  31. IBANDRONATE SODIUM [Concomitant]
     Dates: start: 20060608, end: 20060801
  32. TADALAFIL [Concomitant]
     Dates: start: 20070301, end: 20071101
  33. QUALAQUIN [Concomitant]
     Dates: start: 20070701
  34. FOLIC ACID [Concomitant]
     Indication: PRODUCT USED FOR UNKNOWN INDICATION
  35. EPINEPHRINE [Suspect]
     Indication: PRODUCT USED FOR UNKNOWN INDICATION
     Route: 065
     Dates: start: 20070801, end: 20070801
  36. CYANOCOBALAMIN-TANNIN COMPLEX [Concomitant]
     Route: 060
     Dates: end: 20050101
  37. OMEPRAZOLE [Concomitant]
     Dates: start: 20080801
  38. HYDROCODONE [Concomitant]
     Dosage: DOSE:10/650 MG,ROUTE:PER ORAL
  39. CONJUGATED ESTROGENS [Concomitant]
     Dates: start: 20100701
  40. CALCIUM [Concomitant]
     Dates: end: 20041101
  41. LORTAB [Concomitant]
     Dosage: 10/650 MG
  42. PNEUMOCOCCAL VACCINE [Concomitant]
     Dates: start: 20100701
  43. MABTHERA [Suspect]
     Indication: RHEUMATOID ARTHRITIS
     Dosage: 1000 MG, SINGLE
     Route: 042
     Dates: start: 20070731, end: 20070801
  44. OMEPRAZOLE [Concomitant]
  45. ALENDRONATE SODIUM [Concomitant]
     Dates: start: 20051001
  46. ALENDRONATE SODIUM [Concomitant]
     Dates: start: 20110701
  47. SAVELLA [Concomitant]
     Dosage: ROUTE:PER ORAL
  48. FLUDROCORTISONE ACETATE [Concomitant]
     Dosage: ROUTE:PER ORAL
     Dates: start: 20050801
  49. MULTI-VITAMIN [Concomitant]
     Dosage: ROUTE:PER ORAL
  50. FLUCONAZOLE [Concomitant]
     Dates: start: 20090101

REACTIONS (13)
  - PAIN [None]
  - ARTHRALGIA [None]
  - JOINT SWELLING [None]
  - CATARACT [None]
  - BIOPSY LIP [None]
  - MYOCARDIAL INFARCTION [None]
  - DRUG INEFFECTIVE [None]
  - FIBROMYALGIA [None]
  - HERPES ZOSTER [None]
  - UNEVALUABLE EVENT [None]
  - THYROID NEOPLASM [None]
  - OEDEMA PERIPHERAL [None]
  - IMMUNE SYSTEM DISORDER [None]
